FAERS Safety Report 6610064-2 (Version None)
Quarter: 2010Q1

REPORT INFORMATION
  Report Type: 
  Country: None (occurrence: None)
  Receive Date: 20100302
  Receipt Date: 20100224
  Transmission Date: 20100710
  Serious: Yes (Hospitalization)
  Sender: FDA-Public Use
  Company Number: ES-ROCHE-687649

PATIENT
  Age: 61 Year
  Sex: Male

DRUGS (6)
  1. BEVACIZUMAB [Suspect]
     Dosage: FREQUENCY: 1 TOTAL (NO OTHER SPECIFICATION)
     Route: 042
     Dates: start: 20090722, end: 20090722
  2. PACLITAXEL [Suspect]
     Dosage: FREQUENCY: TOTAL 1
     Route: 042
     Dates: start: 20090722, end: 20090722
  3. CARBOPLATIN [Suspect]
     Dosage: FREQUENCY : TOTAL 1
     Route: 042
     Dates: start: 20090722, end: 20090722
  4. DEXAMETHASONE [Concomitant]
     Route: 042
     Dates: start: 20090722, end: 20090722
  5. PERFALGAN [Concomitant]
     Route: 042
     Dates: start: 20090722, end: 20090722
  6. DEXCHLORPHENIRAMINE [Concomitant]
     Dosage: FREQUENCY: 1 TOTAL DOSE
     Route: 042
     Dates: start: 20090722, end: 20090722

REACTIONS (1)
  - RENAL FAILURE ACUTE [None]
